FAERS Safety Report 9858069 (Version 1)
Quarter: 2014Q1

REPORT INFORMATION
  Report Type: Spontaneous
  Country: US (occurrence: None)
  Receive Date: 20140129
  Receipt Date: 20140129
  Transmission Date: 20141002
  Serious: Yes (Other)
  Sender: FDA-Public Use
  Company Number: None

PATIENT
  Age: 57 Year
  Sex: Female

DRUGS (1)
  1. DULOXETINE [Suspect]
     Indication: MAJOR DEPRESSION
     Dates: start: 20131220, end: 20140114

REACTIONS (5)
  - Tachyphrenia [None]
  - Anxiety [None]
  - Depression [None]
  - Trichotillomania [None]
  - Insomnia [None]
